FAERS Safety Report 10395977 (Version 1)
Quarter: 2014Q3

REPORT INFORMATION
  Report Type: Spontaneous
  Country: CA (occurrence: None)
  Receive Date: 20140818
  Receipt Date: 20140818
  Transmission Date: 20150326
  Serious: Yes (Other)
  Sender: FDA-Public Use
  Company Number: 2014AP003924

PATIENT
  Sex: Male

DRUGS (3)
  1. APO-PAROXETINE (PAROXETINE) TABLET [Suspect]
     Active Substance: PAROXETINE HYDROCHLORIDE
     Indication: ANXIETY
  2. APO-PAROXETINE (PAROXETINE) TABLET [Suspect]
     Active Substance: PAROXETINE HYDROCHLORIDE
     Indication: DRUG ABUSE
  3. APO-PAROXETINE (PAROXETINE) TABLET [Suspect]
     Active Substance: PAROXETINE HYDROCHLORIDE
     Indication: DEPRESSION

REACTIONS (6)
  - Feeling hot [None]
  - Agitation [None]
  - Malaise [None]
  - Withdrawal syndrome [None]
  - Drug dependence [None]
  - Restlessness [None]
